FAERS Safety Report 9402455 (Version 1)
Quarter: 2013Q3

REPORT INFORMATION
  Report Type: Spontaneous
  Country: JM (occurrence: JM)
  Receive Date: 20130716
  Receipt Date: 20130716
  Transmission Date: 20140515
  Serious: Yes (Death, Hospitalization, Other)
  Sender: FDA-Public Use
  Company Number: JM-PFIZER INC-2013205190

PATIENT
  Age: 22 Year
  Sex: Female

DRUGS (6)
  1. CHLORAMPHENICOL [Suspect]
     Indication: DIARRHOEA
     Dosage: UNK
  2. CHLORAMPHENICOL [Suspect]
     Indication: PYREXIA
  3. METRONIDAZOLE [Suspect]
     Indication: DIARRHOEA
     Dosage: UNK
     Route: 042
  4. METRONIDAZOLE [Suspect]
     Indication: PYREXIA
  5. CEFTRIAXONE [Concomitant]
  6. GENTAMYCIN [Concomitant]

REACTIONS (2)
  - Pseudomembranous colitis [Fatal]
  - Drug ineffective [Unknown]
